FAERS Safety Report 13103136 (Version 1)
Quarter: 2017Q1

REPORT INFORMATION
  Report Type: Other
  Country: US (occurrence: US)
  Receive Date: 20170110
  Receipt Date: 20170110
  Transmission Date: 20170428
  Serious: Yes (Other)
  Sender: FDA-Public Use
  Company Number: US-BELCHER PHARMACEUTICALS, LLC-2016VTS00341

PATIENT
  Age: 76 Year
  Sex: Female
  Weight: 68.27 kg

DRUGS (2)
  1. HYOSCYAMINE SULFATE SL [Suspect]
     Active Substance: HYOSCYAMINE SULFATE
     Indication: LACTOSE INTOLERANCE
  2. HYOSCYAMINE SULFATE SL [Suspect]
     Active Substance: HYOSCYAMINE SULFATE
     Indication: IRRITABLE BOWEL SYNDROME
     Dosage: 0.125 MG, AS NEEDED
     Route: 060

REACTIONS (11)
  - Dizziness [Recovered/Resolved]
  - Abdominal pain upper [Recovered/Resolved]
  - Pain in extremity [Recovered/Resolved]
  - Heart rate irregular [Recovered/Resolved]
  - Haemorrhoids thrombosed [Recovered/Resolved]
  - Diarrhoea [Recovered/Resolved]
  - Dehydration [Recovered/Resolved]
  - Vision blurred [Recovered/Resolved]
  - Dry mouth [Not Recovered/Not Resolved]
  - Extrasystoles [Recovered/Resolved]
  - Blood pressure fluctuation [Recovering/Resolving]

NARRATIVE: CASE EVENT DATE: 2016
